FAERS Safety Report 4893629-8 (Version None)
Quarter: 2005Q4

REPORT INFORMATION
  Report Type: 
  Country: None (occurrence: None)
  Receive Date: 20051223
  Receipt Date: 20051006
  Transmission Date: 20060501
  Serious: No
  Sender: FDA-Public Use
  Company Number: 2005PV003147

PATIENT
  Age: 64 Year
  Sex: Male
  Weight: 122.4712 kg

DRUGS (10)
  1. SYMLIN [Suspect]
     Indication: DIABETES MELLITUS NON-INSULIN-DEPENDENT
     Dosage: 10 MCG;TID;SC ; 20 MCG;TID;SC
     Route: 058
     Dates: start: 20050818, end: 20050824
  2. SYMLIN [Suspect]
     Indication: DIABETES MELLITUS NON-INSULIN-DEPENDENT
     Dosage: 10 MCG;TID;SC ; 20 MCG;TID;SC
     Route: 058
     Dates: start: 20050825, end: 20050830
  3. GLYBURIDE [Concomitant]
  4. HUMULIN 75/25 [Concomitant]
  5. GLUCOPHAGE [Concomitant]
  6. AVANDIA [Concomitant]
  7. DIOVAN [Concomitant]
  8. ANDRODERM ^ASTRAZENECA^ [Concomitant]
  9. OMEGA-3 [Concomitant]
  10. LESCOL [Concomitant]

REACTIONS (6)
  - ANXIETY [None]
  - BLOOD GLUCOSE INCREASED [None]
  - IRRITABILITY [None]
  - NERVOUSNESS [None]
  - PSYCHOMOTOR HYPERACTIVITY [None]
  - WEIGHT DECREASED [None]
